FAERS Safety Report 7897424-7 (Version None)
Quarter: 2011Q4

REPORT INFORMATION
  Report Type: 
  Country: None (occurrence: None)
  Receive Date: 20111107
  Receipt Date: 20111105
  Transmission Date: 20120403
  Serious: Yes (Other)
  Sender: FDA-Public Use
  Company Number: US-PFIZER INC-2011270890

PATIENT
  Sex: Female
  Weight: 26.3 kg

DRUGS (1)
  1. LYRICA [Suspect]
     Indication: FIBROMYALGIA
     Dosage: 50 MG, 1X/DAY
     Route: 048
     Dates: start: 20111104, end: 20111105

REACTIONS (7)
  - DIARRHOEA [None]
  - MUSCLE SPASMS [None]
  - DIZZINESS [None]
  - GASTROINTESTINAL PAIN [None]
  - FEELING ABNORMAL [None]
  - THINKING ABNORMAL [None]
  - ABDOMINAL TENDERNESS [None]
